FAERS Safety Report 16335242 (Version 1)
Quarter: 2019Q2

REPORT INFORMATION
  Report Type: Report from Study
  Country: None (occurrence: ES)
  Receive Date: 20190521
  Receipt Date: 20190521
  Transmission Date: 20190711
  Serious: Yes (Hospitalization, Other)
  Sender: FDA-Public Use
  Company Number: ES-ABBVIE-19S-144-2781801-00

PATIENT
  Age: 75 Year
  Sex: Female
  Weight: 73 kg

DRUGS (1)
  1. DUODOPA [Suspect]
     Active Substance: CARBIDOPA\LEVODOPA
     Indication: PARKINSON^S DISEASE
     Route: 050
     Dates: start: 20190509, end: 201905

REACTIONS (6)
  - Dyskinesia [Not Recovered/Not Resolved]
  - Device connection issue [Unknown]
  - Duodenal perforation [Unknown]
  - Peritonitis [Unknown]
  - Stoma site discharge [Unknown]
  - Stoma site pain [Recovering/Resolving]

NARRATIVE: CASE EVENT DATE: 201905
